FAERS Safety Report 5462469-3 (Version None)
Quarter: 2007Q3

REPORT INFORMATION
  Report Type: 
  Country: None (occurrence: None)
  Receive Date: 20070816
  Receipt Date: 20070525
  Transmission Date: 20080115
  Serious: Yes (Other)
  Sender: FDA-Public Use
  Company Number: 37539

PATIENT
  Age: 10 Year
  Sex: Male
  Weight: 40 kg

DRUGS (2)
  1. METHOTREXATE [Suspect]
     Indication: NEUROBLASTOMA
     Dosage: 850 MG
     Dates: start: 20070117
  2. ESOMEPRAZOLE [Concomitant]

REACTIONS (1)
  - RENAL FAILURE [None]
